FAERS Safety Report 7656638-1 (Version None)
Quarter: 2011Q3

REPORT INFORMATION
  Report Type: 
  Country: None (occurrence: None)
  Receive Date: 20110804
  Receipt Date: 20110722
  Transmission Date: 20111222
  Serious: Yes (Hospitalization)
  Sender: FDA-Public Use
  Company Number: US-SANOFI-AVENTIS-2011SA048591

PATIENT
  Age: 67 Year
  Sex: Male
  Weight: 105 kg

DRUGS (14)
  1. ROSUVASTATIN [Concomitant]
     Route: 065
  2. FENOFIBRATE [Concomitant]
     Route: 065
  3. AMLODIPINE [Concomitant]
     Route: 065
  4. CARVEDIOL [Concomitant]
     Route: 065
  5. FUROSEMIDE [Concomitant]
     Route: 065
  6. DOXAZOSIN MESYLATE [Concomitant]
     Route: 065
  7. WARFARIN [Concomitant]
     Route: 065
  8. LORATADINE [Concomitant]
     Route: 065
  9. DRONEDARONE HCL [Suspect]
     Indication: ATRIAL FIBRILLATION
     Route: 048
     Dates: start: 20100920
  10. EZETIMIBE [Concomitant]
     Route: 065
  11. RABEPRAZOLE SODIUM [Concomitant]
     Route: 065
  12. LISINOPRIL [Concomitant]
     Route: 065
  13. JANUVIA [Concomitant]
     Route: 065
  14. PIOGLITAZONE [Concomitant]
     Route: 065

REACTIONS (1)
  - IMPLANTABLE DEFIBRILLATOR INSERTION [None]
